FAERS Safety Report 11293571 (Version 3)
Quarter: 2015Q4

REPORT INFORMATION
  Report Type: Spontaneous
  Country: IT (occurrence: IT)
  Receive Date: 20150722
  Receipt Date: 20151218
  Transmission Date: 20160304
  Serious: Yes (Other)
  Sender: FDA-Public Use
  Company Number: IT-B.I. PHARMACEUTICALS,INC./RIDGEFIELD-2015-BI-39013BY

PATIENT
  Age: 33 Year
  Sex: Female

DRUGS (4)
  1. TELMISARTAN. [Suspect]
     Active Substance: TELMISARTAN
     Indication: HYPERTENSION
     Dosage: 40 MG
     Route: 065
  2. METHYLDOPA. [Concomitant]
     Active Substance: METHYLDOPA
     Indication: PRODUCT USED FOR UNKNOWN INDICATION
     Route: 065
  3. AMLODIPINE [Concomitant]
     Active Substance: AMLODIPINE BESYLATE
     Indication: PRODUCT USED FOR UNKNOWN INDICATION
     Route: 065
  4. TELMISARTAN + HYDROCHLOROTHIAZIDE [Suspect]
     Active Substance: HYDROCHLOROTHIAZIDE\TELMISARTAN
     Indication: HYPERTENSION
     Dosage: DAILY DOSE: 40 MG/80 MG
     Route: 065

REACTIONS (4)
  - Pre-eclampsia [Unknown]
  - Oligohydramnios [Unknown]
  - Maternal exposure during pregnancy [Unknown]
  - Meconium in amniotic fluid [Unknown]
